FAERS Safety Report 8923058 (Version 1)
Quarter: 2012Q4

REPORT INFORMATION
  Report Type: Spontaneous
  Country: US (occurrence: None)
  Receive Date: 20121115
  Receipt Date: 20121115
  Transmission Date: 20130627
  Serious: Yes (Hospitalization)
  Sender: FDA-Public Use
  Company Number: IMP_06066_2012

PATIENT
  Age: 61 Year
  Sex: Male

DRUGS (2)
  1. MINOCYCLINE [Suspect]
     Indication: ACNE
     Route: 048
  2. CARBIDOPA/LEVODOPA [Concomitant]

REACTIONS (10)
  - Dyspnoea [None]
  - Fatigue [None]
  - Fall [None]
  - Skin discolouration [None]
  - Cyanosis [None]
  - Blood pressure increased [None]
  - Ataxia [None]
  - Rosacea [None]
  - Dehydration [None]
  - Scleral discolouration [None]
